FAERS Safety Report 12553061 (Version 1)
Quarter: 2016Q3

REPORT INFORMATION
  Report Type: Spontaneous
  Country: US (occurrence: US)
  Receive Date: 20160713
  Receipt Date: 20160713
  Transmission Date: 20161109
  Serious: Yes (Life-Threatening, Hospitalization)
  Sender: FDA-Public Use
  Company Number: US-PFIZER INC-2016335834

PATIENT
  Age: 18 Year
  Sex: Male

DRUGS (2)
  1. VENLAFAXINE HCL [Suspect]
     Active Substance: VENLAFAXINE HYDROCHLORIDE
     Dosage: UNK
  2. AMITRIPTYLINE [Suspect]
     Active Substance: AMITRIPTYLINE
     Dosage: UNK

REACTIONS (10)
  - Generalised tonic-clonic seizure [Unknown]
  - Hypotension [Unknown]
  - Rhabdomyolysis [Recovered/Resolved]
  - Ventricular arrhythmia [Recovered/Resolved]
  - Cardio-respiratory arrest [Recovered/Resolved]
  - Suicide attempt [Unknown]
  - Acute kidney injury [Recovered/Resolved]
  - Acute respiratory distress syndrome [Recovered/Resolved]
  - Unresponsive to stimuli [Unknown]
  - Overdose [Unknown]
